FAERS Safety Report 9427149 (Version 1)
Quarter: 2013Q3

REPORT INFORMATION
  Report Type: Report from Study
  Country: US (occurrence: US)
  Receive Date: 20130730
  Receipt Date: 20130730
  Transmission Date: 20140515
  Serious: No
  Sender: FDA-Public Use
  Company Number: US-ABBOTT-12P-163-0965649-00

PATIENT
  Age: 60 Year
  Sex: Male
  Weight: 99.88 kg

DRUGS (11)
  1. NIASPAN (COATED) [Suspect]
     Indication: LOW DENSITY LIPOPROTEIN INCREASED
     Dosage: 500MG DAILY
     Dates: start: 201208, end: 201209
  2. NIASPAN (COATED) [Suspect]
     Dosage: 1000 MG DAILY
     Dates: start: 201209
  3. PLAVIX [Concomitant]
     Indication: STENT PLACEMENT
  4. ASA [Concomitant]
     Indication: PRODUCT USED FOR UNKNOWN INDICATION
  5. CRESTOR [Concomitant]
     Indication: PRODUCT USED FOR UNKNOWN INDICATION
  6. 3 OTHERS UNKNOWN [Concomitant]
     Indication: PRODUCT USED FOR UNKNOWN INDICATION
  7. GLIPIZIDE [Concomitant]
     Indication: DIABETES MELLITUS
  8. METFORMIN [Concomitant]
     Indication: DIABETES MELLITUS
  9. LANTUS [Concomitant]
     Indication: DIABETES MELLITUS
  10. HUMALOG [Concomitant]
     Indication: DIABETES MELLITUS
     Dates: start: 201206
  11. UNKNOWN HEART MEDICATIONS [Concomitant]
     Indication: PRODUCT USED FOR UNKNOWN INDICATION

REACTIONS (7)
  - Fatigue [Not Recovered/Not Resolved]
  - Therapeutic response unexpected [Not Recovered/Not Resolved]
  - Sleep disorder [Unknown]
  - Blood glucose increased [Not Recovered/Not Resolved]
  - Feeling abnormal [Not Recovered/Not Resolved]
  - Feeling abnormal [Not Recovered/Not Resolved]
  - Headache [Not Recovered/Not Resolved]
